FAERS Safety Report 9376172 (Version 2)
Quarter: 2013Q3

REPORT INFORMATION
  Report Type: Report from Study
  Country: GB (occurrence: GB)
  Receive Date: 20130701
  Receipt Date: 20130710
  Transmission Date: 20140515
  Serious: Yes (Hospitalization)
  Sender: FDA-Public Use
  Company Number: GB-AMGEN-GBRCT2013045334

PATIENT
  Age: 5 Year
  Sex: Male
  Weight: 19.8 kg

DRUGS (4)
  1. ETANERCEPT [Suspect]
     Indication: PRODUCT USED FOR UNKNOWN INDICATION
     Dosage: 10 MG, 2 TIMES/WK
     Route: 065
     Dates: start: 20100914
  2. PIROXICAM [Concomitant]
     Dosage: UNK
  3. METHOTREXATE [Concomitant]
     Dosage: UNK
     Dates: start: 20090901
  4. FOLIC ACID [Concomitant]
     Dosage: UNK

REACTIONS (2)
  - Tonsillitis [Unknown]
  - Condition aggravated [Unknown]
